FAERS Safety Report 4441486-6 (Version None)
Quarter: 2004Q3

REPORT INFORMATION
  Report Type: 
  Country: None (occurrence: None)
  Receive Date: 20040728
  Receipt Date: 20040407
  Transmission Date: 20050211
  Serious: No
  Sender: FDA-Public Use
  Company Number: USA040464341

PATIENT
  Age: 11 Year
  Sex: Female
  Weight: 39 kg

DRUGS (3)
  1. STRATTERA [Suspect]
     Indication: DISTURBANCE IN ATTENTION
     Dosage: 25 MG DAY
     Dates: start: 20040301
  2. PROZAC [Concomitant]
  3. TENEX [Concomitant]

REACTIONS (4)
  - ANXIETY [None]
  - CRYING [None]
  - EMOTIONAL DISORDER [None]
  - OBSESSIVE-COMPULSIVE DISORDER [None]
